FAERS Safety Report 7044676-1 (Version None)
Quarter: 2010Q4

REPORT INFORMATION
  Report Type: 
  Country: None (occurrence: None)
  Receive Date: 20101014
  Receipt Date: 20100927
  Transmission Date: 20110411
  Serious: Yes (Death)
  Sender: FDA-Public Use
  Company Number: US-BAYER-201036363NA

PATIENT
  Sex: Female
  Weight: 64 kg

DRUGS (33)
  1. MAGNEVIST [Suspect]
     Indication: NUCLEAR MAGNETIC RESONANCE IMAGING BRAIN
     Dosage: AS USED: 20 ML
     Route: 042
     Dates: start: 20060629, end: 20060629
  2. OMNISCAN [Suspect]
     Route: 042
     Dates: start: 20040601, end: 20040601
  3. OMNISCAN [Suspect]
     Route: 042
     Dates: start: 20040706, end: 20040706
  4. OMNISCAN [Suspect]
     Dates: start: 20050108, end: 20050108
  5. OMNISCAN [Suspect]
     Dates: start: 20050227, end: 20050227
  6. OMNISCAN [Suspect]
     Dates: start: 20041223, end: 20041223
  7. OPTIMARK [Suspect]
     Route: 042
     Dates: start: 20040601, end: 20040601
  8. OPTIMARK [Suspect]
  9. OPTIMARK [Suspect]
     Dates: start: 20040706, end: 20040706
  10. UNSPECIFIED GADOLINIUM [Suspect]
  11. CYTOXAN [Concomitant]
  12. ACETYLSALICYLIC ACID SRT [Concomitant]
  13. AMLODIPINE [Concomitant]
  14. DIATX [Concomitant]
  15. FERRLECIT [Concomitant]
  16. ITRACONAZOLE [Concomitant]
  17. LEVETIRACETUM [Concomitant]
  18. LISINOPRIL [Concomitant]
  19. METOPROLOL [Concomitant]
  20. PREDNISONE [Concomitant]
  21. IRON [Concomitant]
  22. TUMS EX [Concomitant]
  23. VALPROIC ACID [Concomitant]
  24. EPOGEN [Concomitant]
  25. SEVELAMER [Concomitant]
  26. KEPPRA [Concomitant]
  27. RENAGEL [Concomitant]
  28. CAPTOPRIL [Concomitant]
  29. DILANTIN [Concomitant]
  30. LAMICTAL [Concomitant]
  31. CLONIDINE [Concomitant]
  32. EPOGEN [Concomitant]
  33. ZEMPLAR [Concomitant]

REACTIONS (14)
  - DRY SKIN [None]
  - EXTREMITY CONTRACTURE [None]
  - HYPERKERATOSIS [None]
  - JOINT RANGE OF MOTION DECREASED [None]
  - MOBILITY DECREASED [None]
  - MUSCLE CONTRACTURE [None]
  - MUSCULOSKELETAL STIFFNESS [None]
  - NEPHROGENIC SYSTEMIC FIBROSIS [None]
  - OEDEMA [None]
  - OEDEMA PERIPHERAL [None]
  - SKIN EXFOLIATION [None]
  - SKIN HYPERTROPHY [None]
  - SKIN INDURATION [None]
  - SKIN PLAQUE [None]
